FAERS Safety Report 5867240-6 (Version None)
Quarter: 2008Q3

REPORT INFORMATION
  Report Type: 
  Country: None (occurrence: None)
  Receive Date: 20080902
  Receipt Date: 20080818
  Transmission Date: 20090109
  Serious: Yes (Other)
  Sender: FDA-Public Use
  Company Number: BR-MERCK-0808BRA00042

PATIENT
  Age: 19 Month
  Sex: Male

DRUGS (1)
  1. SINGULAIR [Suspect]
     Indication: RHINITIS ALLERGIC
     Route: 048
     Dates: start: 20080601, end: 20080101

REACTIONS (2)
  - OFF LABEL USE [None]
  - PETIT MAL EPILEPSY [None]
